FAERS Safety Report 25565618 (Version 1)
Quarter: 2025Q3

REPORT INFORMATION
  Report Type: Spontaneous
  Country: US (occurrence: None)
  Receive Date: 20250715
  Receipt Date: 20250715
  Transmission Date: 20251021
  Serious: Yes (Hospitalization, Other)
  Sender: FDA-CTU
  Company Number: None

PATIENT
  Age: 75 Year
  Sex: Male
  Weight: 94.5 kg

DRUGS (7)
  1. ELIQUIS [Suspect]
     Active Substance: APIXABAN
     Indication: Atrial fibrillation
     Dosage: 1 TABLET(S) TWICE A DAY
     Dates: start: 20250108, end: 20250710
  2. DILTIAZEM [Concomitant]
     Active Substance: DILTIAZEM
  3. METOPROLOL [Concomitant]
     Active Substance: METOPROLOL
  4. LISINOPRIL [Concomitant]
     Active Substance: LISINOPRIL
  5. ENOXAPARIN [Concomitant]
     Active Substance: ENOXAPARIN
  6. VITAMINS [Concomitant]
     Active Substance: VITAMINS
  7. B12 [Concomitant]

REACTIONS (5)
  - Brain oedema [None]
  - Anaemia [None]
  - Prothrombin time prolonged [None]
  - Activated partial thromboplastin time prolonged [None]
  - Complication associated with device [None]

NARRATIVE: CASE EVENT DATE: 20250709
